FAERS Safety Report 6537578-8 (Version None)
Quarter: 2010Q1

REPORT INFORMATION
  Report Type: 
  Country: None (occurrence: None)
  Receive Date: 20100114
  Receipt Date: 20100107
  Transmission Date: 20100710
  Serious: Yes (Other)
  Sender: FDA-Public Use
  Company Number: US-JNJCH-2010000553

PATIENT
  Sex: Female

DRUGS (1)
  1. LISTERINE WHITENING PLUS RESTORING FLUORIDE RINSE [Suspect]
     Indication: DENTAL DISORDER PROPHYLAXIS
     Dosage: TEXT:UNSPECIFIED
     Route: 048

REACTIONS (2)
  - DEVICE BREAKAGE [None]
  - TOOTH DISORDER [None]
